FAERS Safety Report 19193315 (Version 2)
Quarter: 2021Q2

REPORT INFORMATION
  Report Type: Spontaneous
  Country: GB (occurrence: GB)
  Receive Date: 20210429
  Receipt Date: 20210506
  Transmission Date: 20210717
  Serious: Yes (Life-Threatening, Hospitalization, Other)
  Sender: FDA-Public Use
  Company Number: GB-SUN PHARMACEUTICAL INDUSTRIES LTD-2021RR-293749

PATIENT
  Age: 31 Year
  Sex: Female
  Weight: 65.77 kg

DRUGS (3)
  1. SERTRALINE [Suspect]
     Active Substance: SERTRALINE HYDROCHLORIDE
     Indication: OBSESSIVE-COMPULSIVE DISORDER
  2. SERTRALINE [Suspect]
     Active Substance: SERTRALINE HYDROCHLORIDE
     Indication: ILL-DEFINED DISORDER
     Dosage: 50 MILLIGRAM, UNK
     Route: 048
     Dates: start: 20210307, end: 20210321
  3. DIAZEPAM. [Concomitant]
     Active Substance: DIAZEPAM
     Indication: ILL-DEFINED DISORDER
     Dosage: UNKNOWN
     Route: 065

REACTIONS (15)
  - Intrusive thoughts [Recovered/Resolved with Sequelae]
  - Anxiety [Unknown]
  - Adverse drug reaction [Recovered/Resolved with Sequelae]
  - Decreased appetite [Recovered/Resolved with Sequelae]
  - Tremor [Recovered/Resolved with Sequelae]
  - Psychotic disorder [Recovered/Resolved with Sequelae]
  - Hallucination [Unknown]
  - Delusion [Recovered/Resolved with Sequelae]
  - Nausea [Unknown]
  - Dyskinesia [Recovered/Resolved with Sequelae]
  - Abnormal dreams [Recovered/Resolved with Sequelae]
  - Suicide attempt [Unknown]
  - Insomnia [Recovered/Resolved with Sequelae]
  - Depersonalisation/derealisation disorder [Unknown]
  - Suicidal ideation [Recovered/Resolved with Sequelae]

NARRATIVE: CASE EVENT DATE: 20210308
